FAERS Safety Report 8338071-2 (Version None)
Quarter: 2012Q2

REPORT INFORMATION
  Report Type: 
  Country: None (occurrence: None)
  Receive Date: 20120504
  Receipt Date: 20120425
  Transmission Date: 20120825
  Serious: Yes (Hospitalization, Other)
  Sender: FDA-Public Use
  Company Number: US-ASTRAZENECA-2012SE26901

PATIENT
  Sex: Female
  Weight: 113.4 kg

DRUGS (7)
  1. OXYCODONE HCL [Concomitant]
     Indication: OSTEOARTHRITIS
  2. CLONIDINE [Concomitant]
  3. VENTOLIN [Concomitant]
  4. ASPIRIN [Concomitant]
  5. NEXIUM [Suspect]
     Indication: GASTROOESOPHAGEAL REFLUX DISEASE
     Route: 048
  6. NORVASC [Concomitant]
  7. ADVAIR DISKUS 100/50 [Concomitant]

REACTIONS (4)
  - THROAT IRRITATION [None]
  - INTENTIONAL DRUG MISUSE [None]
  - COUGH [None]
  - DIVERTICULUM [None]
